FAERS Safety Report 11829697 (Version 1)
Quarter: 2015Q4

REPORT INFORMATION
  Report Type: Spontaneous
  Country: US (occurrence: US)
  Receive Date: 20151212
  Receipt Date: 20151212
  Transmission Date: 20160305
  Serious: Yes (Death)
  Sender: FDA-Public Use
  Company Number: US-ASTRAZENECA-2015SF23053

PATIENT
  Age: 32 Year
  Sex: Male

DRUGS (13)
  1. QUETIAPINE FUMARATE. [Suspect]
     Active Substance: QUETIAPINE FUMARATE
     Route: 065
  2. LEVOTHYROXINE. [Suspect]
     Active Substance: LEVOTHYROXINE
     Route: 065
  3. METFORMINE [Suspect]
     Active Substance: METFORMIN HYDROCHLORIDE
     Route: 065
  4. CLONAZEPAM. [Suspect]
     Active Substance: CLONAZEPAM
     Route: 065
  5. OXYCODONE [Suspect]
     Active Substance: OXYCODONE
     Route: 065
  6. IBUPROFEN. [Suspect]
     Active Substance: IBUPROFEN
     Route: 065
  7. DIAZEPAM. [Suspect]
     Active Substance: DIAZEPAM
     Route: 065
  8. ACETAMINOPHEN/HYDROCODONE [Suspect]
     Active Substance: ACETAMINOPHEN\HYDROCODONE
     Route: 065
  9. METHADONE [Suspect]
     Active Substance: METHADONE HYDROCHLORIDE
     Route: 065
  10. FLUOXETINE [Suspect]
     Active Substance: FLUOXETINE HYDROCHLORIDE
     Route: 065
  11. ALPRAZOLAM. [Suspect]
     Active Substance: ALPRAZOLAM
     Route: 065
  12. NAPROXEN. [Suspect]
     Active Substance: NAPROXEN
     Route: 065
  13. MORPHINE [Suspect]
     Active Substance: MORPHINE
     Route: 065

REACTIONS (2)
  - Completed suicide [Fatal]
  - Toxicity to various agents [Fatal]
